FAERS Safety Report 9168897 (Version 3)
Quarter: 2013Q2

REPORT INFORMATION
  Report Type: Spontaneous
  Country: US (occurrence: US)
  Receive Date: 20130318
  Receipt Date: 20130617
  Transmission Date: 20140414
  Serious: Yes (Hospitalization)
  Sender: FDA-Public Use
  Company Number: US-PFIZER INC-2013085896

PATIENT
  Age: 81 Year
  Sex: Male

DRUGS (8)
  1. SUTENT [Suspect]
     Indication: PANCREATIC NEUROENDOCRINE TUMOUR
     Dosage: 50 MG, 1X/DAY
     Route: 048
     Dates: start: 201210, end: 20130121
  2. HYDROMORPHONE [Concomitant]
     Dosage: UNK
  3. ZOCOR [Concomitant]
     Dosage: UNK
  4. NORVASC [Concomitant]
     Dosage: UNK
  5. LORAZEPAM [Concomitant]
     Dosage: UNK
  6. NEXIUM [Concomitant]
     Dosage: UNK
  7. LOMOTIL [Concomitant]
     Dosage: UNK
  8. ASPIRIN [Concomitant]
     Dosage: UNK

REACTIONS (14)
  - Anaemia [Unknown]
  - Clostridium difficile colitis [Recovered/Resolved]
  - Diarrhoea [Recovered/Resolved]
  - Dehydration [Unknown]
  - Candida infection [Recovered/Resolved]
  - Hypotension [Unknown]
  - Dysphagia [Recovered/Resolved]
  - Ascites [Unknown]
  - Malnutrition [Recovering/Resolving]
  - Performance status decreased [Unknown]
  - Asthenia [Unknown]
  - Weight decreased [Unknown]
  - Disease progression [Unknown]
  - Neuroendocrine carcinoma [Unknown]
